FAERS Safety Report 11364723 (Version 2)
Quarter: 2016Q1

REPORT INFORMATION
  Report Type: Spontaneous
  Country: US (occurrence: US)
  Receive Date: 20150811
  Receipt Date: 20160202
  Transmission Date: 20160525
  Serious: No
  Sender: FDA-Public Use
  Company Number: US-BAXTER-2015BAX043207

PATIENT
  Sex: Female

DRUGS (1)
  1. DIANEAL LOW CALCIUM PERITONEAL DIALYSIS SOLUTION WITH DEXTROSE [Suspect]
     Active Substance: CALCIUM CHLORIDE\DEXTROSE\MAGNESIUM CHLORIDE\SODIUM CHLORIDE\SODIUM LACTATE
     Indication: PERITONEAL DIALYSIS
     Route: 033

REACTIONS (6)
  - Feeling abnormal [Unknown]
  - Peritoneal disorder [Unknown]
  - Peritoneal dialysis complication [Unknown]
  - Nausea [Not Recovered/Not Resolved]
  - Catheter site related reaction [Recovering/Resolving]
  - Dyspnoea [Unknown]
